FAERS Safety Report 10463814 (Version 3)
Quarter: 2015Q1

REPORT INFORMATION
  Report Type: Spontaneous
  Country: IT (occurrence: IT)
  Receive Date: 20140919
  Receipt Date: 20150210
  Transmission Date: 20150720
  Serious: Yes (Death)
  Sender: FDA-Public Use
  Company Number: IT-TEVA-509403ISR

PATIENT
  Age: 39 Year
  Sex: Male

DRUGS (3)
  1. ARACTYN [Suspect]
     Active Substance: CYTARABINE
     Indication: ACUTE MYELOID LEUKAEMIA
     Route: 042
     Dates: start: 20140808, end: 20140812
  2. DAUNOBLASTINA [Suspect]
     Active Substance: DAUNORUBICIN
     Indication: ACUTE MYELOID LEUKAEMIA
     Route: 042
     Dates: start: 20140808, end: 20140812
  3. ETOPOSIDE TEVA [Suspect]
     Active Substance: ETOPOSIDE
     Indication: ACUTE MYELOID LEUKAEMIA
     Dates: start: 20140808, end: 20140812

REACTIONS (4)
  - Hyperbilirubinaemia [Fatal]
  - Acute hepatic failure [Fatal]
  - Jaundice [Fatal]
  - Death [Fatal]

NARRATIVE: CASE EVENT DATE: 20140821
